FAERS Safety Report 5665032-4 (Version None)
Quarter: 2008Q1

REPORT INFORMATION
  Report Type: 
  Country: None (occurrence: None)
  Receive Date: 20080314
  Receipt Date: 20080303
  Transmission Date: 20080703
  Serious: Yes (Hospitalization)
  Sender: FDA-Public Use
  Company Number: FR-PFIZER INC-2008020685

PATIENT
  Sex: Male

DRUGS (5)
  1. TAHOR [Suspect]
     Route: 048
     Dates: start: 20071101, end: 20071122
  2. DAONIL [Concomitant]
  3. KARDEGIC [Concomitant]
  4. DAFLON [Concomitant]
     Dosage: TEXT:2 PER DAY
  5. TEXODIL [Concomitant]
     Dates: start: 20071030, end: 20071107

REACTIONS (1)
  - CYTOLYTIC HEPATITIS [None]
